FAERS Safety Report 4932562-X (Version None)
Quarter: 2006Q1

REPORT INFORMATION
  Report Type: 
  Country: None (occurrence: None)
  Receive Date: 20060301
  Receipt Date: 20060216
  Transmission Date: 20060701
  Serious: Yes (Hospitalization, Other)
  Sender: FDA-Public Use
  Company Number: 2006024640

PATIENT
  Sex: Female

DRUGS (1)
  1. PREPIDIL [Suspect]
     Indication: LABOUR INDUCTION

REACTIONS (1)
  - DISSEMINATED INTRAVASCULAR COAGULATION [None]
